FAERS Safety Report 9410697 (Version 2)
Quarter: 2013Q3

REPORT INFORMATION
  Report Type: Spontaneous
  Country: NL (occurrence: NL)
  Receive Date: 20130719
  Receipt Date: 20130821
  Transmission Date: 20140515
  Serious: Yes (Other)
  Sender: FDA-Public Use
  Company Number: NL-MERCK-1305NLD011364

PATIENT
  Age: 51 Year
  Sex: Female

DRUGS (3)
  1. PEGINTRON [Suspect]
     Indication: HEPATITIS C
     Dosage: UNK, QW
     Route: 058
     Dates: start: 20130501
  2. REBETOL [Suspect]
     Indication: HEPATITIS C
     Dosage: 1 DD 3 +1 DD 2
     Route: 048
     Dates: start: 20130501
  3. PARACETAMOL [Concomitant]
     Dosage: UNK, HS

REACTIONS (15)
  - Haemoglobin decreased [Not Recovered/Not Resolved]
  - Transfusion [Unknown]
  - Ageusia [Not Recovered/Not Resolved]
  - Pyrexia [Not Recovered/Not Resolved]
  - Fatigue [Not Recovered/Not Resolved]
  - Dry skin [Recovered/Resolved]
  - Pruritus [Recovered/Resolved]
  - Nausea [Not Recovered/Not Resolved]
  - Decreased appetite [Not Recovered/Not Resolved]
  - Haemorrhoids [Not Recovered/Not Resolved]
  - Myalgia [Recovered/Resolved]
  - Dry mouth [Not Recovered/Not Resolved]
  - Musculoskeletal pain [Not Recovered/Not Resolved]
  - Muscle spasms [Not Recovered/Not Resolved]
  - Pyrexia [Not Recovered/Not Resolved]
